FAERS Safety Report 18022777 (Version 1)
Quarter: 2020Q3

REPORT INFORMATION
  Report Type: Spontaneous
  Country: BR (occurrence: BR)
  Receive Date: 20200715
  Receipt Date: 20200715
  Transmission Date: 20201103
  Serious: Yes (Death, Other)
  Sender: FDA-Public Use
  Company Number: BR-ROCHE-2638583

PATIENT
  Age: 96 Year
  Sex: Male
  Weight: 69 kg

DRUGS (1)
  1. TOCILIZUMAB. [Suspect]
     Active Substance: TOCILIZUMAB
     Indication: COVID-19
     Route: 042
     Dates: start: 20200611, end: 20200611

REACTIONS (3)
  - COVID-19 [Fatal]
  - Intentional product use issue [Unknown]
  - Off label use [Unknown]
